FAERS Safety Report 5556283-8 (Version None)
Quarter: 2007Q4

REPORT INFORMATION
  Report Type: 
  Country: None (occurrence: None)
  Receive Date: 20071203
  Receipt Date: 20071126
  Transmission Date: 20080405
  Serious: Yes (Other)
  Sender: FDA-Public Use
  Company Number: 2007336215

PATIENT
  Sex: Female

DRUGS (1)
  1. ROGAINE [Suspect]
     Dosage: 1 ML TWICE DAILY, TOPICAL
     Route: 061
     Dates: end: 20071126

REACTIONS (4)
  - BLOOD COUNT ABNORMAL [None]
  - DIARRHOEA [None]
  - DYSGEUSIA [None]
  - NAUSEA [None]
